FAERS Safety Report 14967111 (Version 1)
Quarter: 2018Q3

REPORT INFORMATION
  Report Type: Report from Study
  Country: AU (occurrence: AU)
  Receive Date: 20180604
  Receipt Date: 20180604
  Transmission Date: 20181010
  Serious: Yes (Hospitalization)
  Sender: FDA-Public Use
  Company Number: AU-CHEPLA-C20170652

PATIENT
  Age: 76 Year
  Sex: Female
  Weight: 66.8 kg

DRUGS (17)
  1. VITAMIN D [Concomitant]
     Active Substance: CHOLECALCIFEROL
  2. TRANEXAMIC ACID. [Concomitant]
     Active Substance: TRANEXAMIC ACID
  3. IMG?7289 [Suspect]
     Active Substance: INVESTIGATIONAL PRODUCT
     Indication: MYELOID LEUKAEMIA
     Route: 048
     Dates: end: 20170920
  4. DIGOXIN. [Concomitant]
     Active Substance: DIGOXIN
  5. ONDANSETRON [Concomitant]
     Active Substance: ONDANSETRON
  6. VALACYCLOVIR [Concomitant]
     Active Substance: VALACYCLOVIR HYDROCHLORIDE
  7. PARACETAMOL [Concomitant]
     Active Substance: ACETAMINOPHEN
     Indication: PRODUCT USED FOR UNKNOWN INDICATION
     Route: 065
  8. SLOW K [Concomitant]
     Active Substance: POTASSIUM CHLORIDE
  9. CIPROFLOXACIN. [Concomitant]
     Active Substance: CIPROFLOXACIN
  10. G?CSF [Concomitant]
     Active Substance: GRANULOCYTE COLONY-STIMULATING FACTOR NOS
  11. AMOXICILLIN CLAVULANIC ACID [Concomitant]
     Active Substance: AMOXICILLIN\CLAVULANIC ACID
  12. METOPROLOL. [Concomitant]
     Active Substance: METOPROLOL
  13. PANTOPRAZOLE [Concomitant]
     Active Substance: PANTOPRAZOLE
  14. XALATAN [Concomitant]
     Active Substance: LATANOPROST
  15. TAZOCIN [Concomitant]
     Active Substance: PIPERACILLIN SODIUM\TAZOBACTAM SODIUM
  16. TRETINOIN. [Suspect]
     Active Substance: TRETINOIN
     Indication: MYELOID LEUKAEMIA
     Route: 048
     Dates: start: 20170905, end: 20170920
  17. FUROSEMIDE. [Concomitant]
     Active Substance: FUROSEMIDE

REACTIONS (12)
  - Product use in unapproved indication [Recovered/Resolved]
  - Red blood cell count decreased [None]
  - Cough [Recovered/Resolved]
  - Haemoglobin decreased [None]
  - Blood uric acid increased [None]
  - Blood bilirubin increased [None]
  - White blood cell count decreased [None]
  - Febrile neutropenia [Not Recovered/Not Resolved]
  - Platelet count [None]
  - Blood alkaline phosphatase increased [None]
  - Blood bilirubin unconjugated increased [None]
  - Haematocrit [None]

NARRATIVE: CASE EVENT DATE: 20170905
